FAERS Safety Report 17185236 (Version 1)
Quarter: 2019Q4

REPORT INFORMATION
  Report Type: Spontaneous
  Country: US (occurrence: US)
  Receive Date: 20191220
  Receipt Date: 20191220
  Transmission Date: 20200122
  Serious: No
  Sender: FDA-Public Use
  Company Number: US-THERAPEUTICSMD-2019TMD03219

PATIENT
  Sex: Female
  Weight: 65.76 kg

DRUGS (3)
  1. UNSPECIFIED VITAMINS [Concomitant]
     Active Substance: VITAMINS
  2. SYNTHROID [Concomitant]
     Active Substance: LEVOTHYROXINE SODIUM
  3. IMVEXXY [Suspect]
     Active Substance: ESTRADIOL
     Indication: DYSPAREUNIA
     Dosage: 10 ?G, 1X/DAY AT BEDTIME
     Route: 067
     Dates: start: 201903, end: 2019

REACTIONS (3)
  - Drug ineffective [Recovered/Resolved]
  - Product residue present [Recovered/Resolved]
  - Product storage error [Recovered/Resolved]

NARRATIVE: CASE EVENT DATE: 2019
